FAERS Safety Report 8247434-5 (Version None)
Quarter: 2012Q1

REPORT INFORMATION
  Report Type: 
  Country: None (occurrence: None)
  Receive Date: 20120330
  Receipt Date: 20120320
  Transmission Date: 20120608
  Serious: Yes (Death)
  Sender: FDA-Public Use
  Company Number: GB-ROCHE-1052407

PATIENT
  Sex: Male

DRUGS (27)
  1. OMEPRAZOLE [Concomitant]
     Dates: start: 19990413, end: 20120319
  2. SPIRONOLACTONE [Concomitant]
     Dates: start: 20110709, end: 20120319
  3. WARFARIN SODIUM [Concomitant]
  4. FRUSEMIDE [Concomitant]
     Dates: start: 20020709
  5. BISOPROLOL FUMARATE [Concomitant]
  6. ATORVASTATIN [Concomitant]
     Dates: start: 20030423, end: 20120319
  7. NOVORAPID [Concomitant]
     Dates: start: 20060710, end: 20120319
  8. LORATINE [Concomitant]
     Dates: start: 20120222, end: 20120319
  9. SERTRALINE HYDROCHLORIDE [Concomitant]
     Dates: start: 20120229, end: 20120319
  10. LORAZEPAM [Concomitant]
     Dates: start: 20120229, end: 20120319
  11. NITRAZEPAM [Concomitant]
     Dates: start: 20111115, end: 20120319
  12. ALFACALCIDOL [Concomitant]
     Dates: end: 20120319
  13. AUGMENTIN [Concomitant]
     Dates: start: 20111208
  14. ACETAMINOPHEN [Concomitant]
     Dates: start: 20111208, end: 20120319
  15. QUININE SULFATE [Concomitant]
  16. LEVEMIR [Concomitant]
     Dates: start: 20060710
  17. GABAPENTIN [Concomitant]
     Dates: start: 20120227, end: 20120319
  18. OLANZAPINE [Concomitant]
     Dates: start: 20120229, end: 20120319
  19. CALCIUM ACETATE [Concomitant]
     Dates: start: 20060412, end: 20120319
  20. FENTANYL [Concomitant]
     Dates: start: 20120227, end: 20120319
  21. CLINDAMYCIN [Concomitant]
     Dates: start: 20111115
  22. MIRCERA [Suspect]
     Indication: NEPHROGENIC ANAEMIA
     Route: 042
  23. ROPINIROLE [Concomitant]
     Dates: start: 20100316
  24. ALBUTEROL [Concomitant]
  25. AUGMENTIN [Concomitant]
     Dates: start: 20111121
  26. FRESUBIN [Concomitant]
     Dates: start: 20120227, end: 20120319
  27. MIRTAZAPINE [Concomitant]
     Dates: start: 20120110, end: 20120319

REACTIONS (1)
  - DEATH [None]
